FAERS Safety Report 9736268 (Version 2)
Quarter: 2014Q1

REPORT INFORMATION
  Report Type: Spontaneous
  Country: DE (occurrence: DE)
  Receive Date: 20131206
  Receipt Date: 20140103
  Transmission Date: 20141002
  Serious: Yes (Death)
  Sender: FDA-Public Use
  Company Number: DE-TMC-CABO-13003712

PATIENT
  Age: 25 Year
  Sex: Female

DRUGS (23)
  1. COMETRIQ [Suspect]
     Indication: MEDULLARY THYROID CANCER
     Dosage: 140 MG, QD
     Route: 048
     Dates: end: 2013
  2. COMETRIQ [Suspect]
     Dosage: 60 MG, QD
     Route: 048
     Dates: start: 20130508, end: 20131019
  3. PANTOZOL [Concomitant]
  4. ARCOXIA [Concomitant]
  5. MUSARIL [Concomitant]
  6. AMITRIPTYLIN [Concomitant]
  7. FURORESE [Concomitant]
  8. DEXAMETHASON [Concomitant]
  9. METAMIZOL [Concomitant]
  10. DUROGESIC [Concomitant]
  11. SEVREDOL [Concomitant]
  12. NEUROCIL [Concomitant]
  13. ZOFRAN [Concomitant]
  14. MCP [Concomitant]
  15. DENOSUMAB [Concomitant]
  16. PERENTEROL FORTE [Concomitant]
  17. LORMETAZEPAM [Concomitant]
  18. CALCIUM, COLECALCIFEROL [Concomitant]
  19. FENTANYL PFLASTER [Concomitant]
  20. L-THYROXIN [Concomitant]
  21. MIRTAZAPIN [Concomitant]
  22. ZOPLICONE [Concomitant]
  23. DRONABINOL [Concomitant]

REACTIONS (1)
  - Malignant neoplasm progression [Fatal]
